FAERS Safety Report 25661171 (Version 1)
Quarter: 2025Q3

REPORT INFORMATION
  Report Type: Report from Study
  Country: EU (occurrence: EU)
  Receive Date: 20250808
  Receipt Date: 20250808
  Transmission Date: 20251021
  Serious: Yes (Other)
  Sender: GILEAD
  Company Number: EU-GILEAD-2025-0723240

PATIENT
  Age: 54 Year

DRUGS (4)
  1. COBICISTAT [Interacting]
     Active Substance: COBICISTAT
     Indication: HIV infection
     Route: 065
     Dates: start: 2016
  2. FLUTICASONE\FORMOTEROL [Interacting]
     Active Substance: FLUTICASONE\FORMOTEROL
     Indication: Chronic obstructive pulmonary disease
     Route: 055
  3. DARUNAVIR [Concomitant]
     Active Substance: DARUNAVIR
     Dates: start: 2016
  4. BECLOMETHASONE\FENOTEROL [Concomitant]
     Active Substance: BECLOMETHASONE\FENOTEROL

REACTIONS (2)
  - Cushing^s syndrome [Unknown]
  - Drug interaction [Unknown]
